FAERS Safety Report 4869068-2 (Version None)
Quarter: 2005Q4

REPORT INFORMATION
  Report Type: 
  Country: None (occurrence: None)
  Receive Date: 20051220
  Receipt Date: 20051207
  Transmission Date: 20060501
  Serious: Yes (Other)
  Sender: FDA-Public Use
  Company Number: 2005BH003432

PATIENT
  Sex: Male

DRUGS (1)
  1. ADVATE [Suspect]
     Dosage: 1050 UNITS; UNK
     Route: 065

REACTIONS (8)
  - ANAPHYLACTIC REACTION [None]
  - ERYTHEMA [None]
  - EYE SWELLING [None]
  - FACE OEDEMA [None]
  - FLUSHING [None]
  - HAEMARTHROSIS [None]
  - PRURITUS [None]
  - RASH [None]
